FAERS Safety Report 10593485 (Version 4)
Quarter: 2017Q4

REPORT INFORMATION
  Report Type: Spontaneous
  Country: TR (occurrence: TR)
  Receive Date: 20141119
  Receipt Date: 20171013
  Transmission Date: 20180320
  Serious: Yes (Hospitalization, Other)
  Sender: FDA-Public Use
  Company Number: TR-JNJFOC-20141111871

PATIENT
  Age: 28 Year
  Sex: Male

DRUGS (21)
  1. ESMERON [Concomitant]
     Active Substance: ROCURONIUM BROMIDE
     Route: 065
     Dates: start: 20130308, end: 20130308
  2. CEFPROZIL. [Concomitant]
     Active Substance: CEFPROZIL
     Route: 065
     Dates: start: 20130310, end: 20130312
  3. ACETYLCYSTEINE. [Concomitant]
     Active Substance: ACETYLCYSTEINE
     Route: 065
     Dates: start: 20130307, end: 20130309
  4. LACTULOSE. [Concomitant]
     Active Substance: LACTULOSE
     Dosage: ONLY THIRD DAY
     Route: 065
     Dates: start: 20120212
  5. ALDOLAN [Concomitant]
     Route: 065
     Dates: start: 20130308, end: 20130308
  6. TRAMADOL HYDROCHLORIDE. [Suspect]
     Active Substance: TRAMADOL HYDROCHLORIDE
     Indication: PAIN
     Route: 065
     Dates: start: 201202
  7. PIROPHEN [Concomitant]
     Dosage: ONLY SECOND DAY
     Route: 065
     Dates: start: 20120211
  8. TRAMADOL HYDROCHLORIDE. [Suspect]
     Active Substance: TRAMADOL HYDROCHLORIDE
     Indication: PAIN
     Route: 065
     Dates: start: 20130307
  9. RANITIDINE. [Concomitant]
     Active Substance: RANITIDINE
     Route: 065
     Dates: start: 20130308, end: 20130308
  10. DICLOFENAC [Concomitant]
     Active Substance: DICLOFENAC
     Route: 065
     Dates: start: 20130307, end: 20130309
  11. ATROPINE. [Concomitant]
     Active Substance: ATROPINE
     Route: 065
     Dates: start: 20130308, end: 20130308
  12. NEOSTIGMINE [Concomitant]
     Active Substance: NEOSTIGMINE
     Route: 065
     Dates: start: 20130308, end: 20130308
  13. TENOXICAM [Concomitant]
     Active Substance: TENOXICAM
     Route: 065
     Dates: start: 20130308, end: 20130308
  14. NOVALGIN [Concomitant]
     Active Substance: METAMIZOLE SODIUM
     Route: 065
     Dates: start: 201202
  15. VENTOLINE [Concomitant]
     Active Substance: ALBUTEROL
     Route: 045
     Dates: start: 201202
  16. DECORT [Concomitant]
     Route: 065
     Dates: start: 20130308, end: 20130308
  17. CEFAZOLINE [Concomitant]
     Active Substance: CEFAZOLIN SODIUM
     Route: 065
     Dates: start: 20130307, end: 20130310
  18. MORPHINE [Concomitant]
     Active Substance: MORPHINE
     Route: 065
     Dates: start: 20130308
  19. PROPOFOL. [Concomitant]
     Active Substance: PROPOFOL
     Route: 065
     Dates: start: 20130308, end: 20130308
  20. MARCAIN [Concomitant]
     Active Substance: BUPIVACAINE HYDROCHLORIDE
     Route: 065
     Dates: start: 20130308, end: 20130308
  21. OMEPRAZOLE. [Concomitant]
     Active Substance: OMEPRAZOLE
     Route: 065
     Dates: start: 20130310, end: 20130312

REACTIONS (2)
  - Mania [Recovered/Resolved]
  - Hypomania [Recovered/Resolved]

NARRATIVE: CASE EVENT DATE: 201202
